FAERS Safety Report 23518645 (Version 2)
Quarter: 2024Q1

REPORT INFORMATION
  Report Type: Spontaneous
  Country: DE (occurrence: DE)
  Receive Date: 20240213
  Receipt Date: 20240229
  Transmission Date: 20240410
  Serious: Yes (Life-Threatening, Hospitalization)
  Sender: FDA-Public Use
  Company Number: DE-PFIZER INC-202400037864

PATIENT
  Age: 77 Year
  Sex: Female
  Weight: 80 kg

DRUGS (2)
  1. TRAZIMERA [Suspect]
     Active Substance: TRASTUZUMAB-QYYP
     Indication: Breast cancer metastatic
     Dosage: 486 MG, EVERY 3 WEEKS
     Route: 042
  2. CAPECITABINE [Concomitant]
     Active Substance: CAPECITABINE

REACTIONS (3)
  - Neutropenia [Recovered/Resolved]
  - Mouth ulceration [Recovered/Resolved]
  - Agranulocytosis [Recovered/Resolved]

NARRATIVE: CASE EVENT DATE: 20231221
